FAERS Safety Report 12690877 (Version 1)
Quarter: 2016Q3

REPORT INFORMATION
  Report Type: Spontaneous
  Country: DK (occurrence: DK)
  Receive Date: 20160826
  Receipt Date: 20160826
  Transmission Date: 20161109
  Serious: Yes (Disabling)
  Sender: FDA-Public Use
  Company Number: DK-SEPTODONT-201200678

PATIENT
  Age: 34 Year
  Sex: Male

DRUGS (1)
  1. SEPTANEST [Suspect]
     Active Substance: ARTICAINE HYDROCHLORIDE\EPINEPHRINE BITARTRATE
     Indication: LOCAL ANAESTHESIA
     Dosage: 1 CARTRIDGE
     Route: 004
     Dates: start: 20101028

REACTIONS (3)
  - Facial pain [Not Recovered/Not Resolved]
  - Paraesthesia oral [Not Recovered/Not Resolved]
  - Vth nerve injury [Not Recovered/Not Resolved]

NARRATIVE: CASE EVENT DATE: 20101028
